FAERS Safety Report 4584860-X (Version None)
Quarter: 2005Q1

REPORT INFORMATION
  Report Type: 
  Country: None (occurrence: None)
  Receive Date: 20050217
  Receipt Date: 20041101
  Transmission Date: 20050727
  Serious: Yes (Other)
  Sender: FDA-Public Use
  Company Number: US-GLAXOSMITHKLINE-A0532065A

PATIENT
  Age: 43 Year
  Sex: Female

DRUGS (6)
  1. WELLBUTRIN [Suspect]
     Indication: DEPRESSION
     Dosage: 300MG PER DAY
     Route: 048
     Dates: start: 20040803, end: 20041028
  2. ACIPHEX [Concomitant]
  3. NASONEX [Concomitant]
  4. HYDROCODONE [Concomitant]
  5. ULTRAM [Concomitant]
  6. ZOMIG [Concomitant]

REACTIONS (3)
  - AMNESIA [None]
  - CONVULSION [None]
  - GRAND MAL CONVULSION [None]
